FAERS Safety Report 4777482-9 (Version None)
Quarter: 2005Q3

REPORT INFORMATION
  Report Type: 
  Country: None (occurrence: None)
  Receive Date: 20050915
  Receipt Date: 20050826
  Transmission Date: 20060218
  Serious: Yes (Hospitalization)
  Sender: FDA-Public Use
  Company Number: US_0405103177

PATIENT
  Age: 80 Year
  Sex: Female
  Weight: 54 kg

DRUGS (19)
  1. FORTEO [Suspect]
     Indication: OSTEOPOROSIS
     Dosage: 20 UG
     Dates: start: 20040212
  2. ADVAIR DISKUS 100/50 [Concomitant]
  3. ALBUTEROL [Concomitant]
  4. ASPIRIN [Concomitant]
  5. DIGOXIN [Concomitant]
  6. FOLIC ACID [Concomitant]
  7. KLOR-CON [Concomitant]
  8. NEXIUM [Concomitant]
  9. PEPCID [Concomitant]
  10. ZESTRIL [Concomitant]
  11. CALCIUM WITH VITAMIN D [Concomitant]
  12. PREDNISONE [Concomitant]
  13. METHOTREXATE [Concomitant]
  14. DIOVAN [Concomitant]
  15. VITAMIN D [Concomitant]
  16. PLENDIL [Concomitant]
  17. METOPROLOL [Concomitant]
  18. THEOPHYLLINE [Concomitant]
  19. NITROGLYCERIN [Concomitant]

REACTIONS (53)
  - ABDOMINAL DISTENSION [None]
  - ABDOMINAL HERNIA [None]
  - ABDOMINAL PAIN [None]
  - ABDOMINAL STRANGULATED HERNIA [None]
  - AORTIC ATHEROSCLEROSIS [None]
  - ARTERIOVENOUS MALFORMATION [None]
  - BACTERIA URINE IDENTIFIED [None]
  - BILIARY DILATATION [None]
  - BLOOD GLUCOSE INCREASED [None]
  - BLOOD MAGNESIUM DECREASED [None]
  - BLOOD PRESSURE SYSTOLIC INCREASED [None]
  - BOWEL SOUNDS ABNORMAL [None]
  - CHEST PAIN [None]
  - DIARRHOEA [None]
  - DIASTOLIC DYSFUNCTION [None]
  - DILATATION ATRIAL [None]
  - DYSPNOEA [None]
  - ELECTROCARDIOGRAM POOR R-WAVE PROGRESSION [None]
  - FAECAL VOLUME DECREASED [None]
  - FIBRIN D DIMER INCREASED [None]
  - FLATULENCE [None]
  - HAEMATOCRIT DECREASED [None]
  - HAEMORRHOIDAL HAEMORRHAGE [None]
  - HERNIA [None]
  - HIATUS HERNIA [None]
  - HYDRONEPHROSIS [None]
  - HYPERCALCAEMIA [None]
  - HYPERKALAEMIA [None]
  - INCISION SITE COMPLICATION [None]
  - INGUINAL HERNIA [None]
  - INTESTINAL STOMA COMPLICATION [None]
  - LUNG INFILTRATION [None]
  - MALNUTRITION [None]
  - MITRAL VALVE CALCIFICATION [None]
  - MITRAL VALVE INCOMPETENCE [None]
  - MUSCLE SPASMS [None]
  - NEOPLASM MALIGNANT [None]
  - NEPHROLITHIASIS [None]
  - PAIN [None]
  - POST PROCEDURAL HAEMORRHAGE [None]
  - POSTOPERATIVE ILEUS [None]
  - PROTEIN TOTAL INCREASED [None]
  - PROTHROMBIN TIME SHORTENED [None]
  - PYREXIA [None]
  - RECTAL HAEMORRHAGE [None]
  - RENAL CYST [None]
  - RENAL DISORDER [None]
  - RENAL VESSEL DISORDER [None]
  - SMALL INTESTINAL OBSTRUCTION [None]
  - TRICUSPID VALVE INCOMPETENCE [None]
  - URINARY TRACT INFECTION [None]
  - VENTRICULAR HYPERTROPHY [None]
  - WHITE BLOOD CELL COUNT INCREASED [None]
